FAERS Safety Report 5173853-X (Version None)
Quarter: 2006Q4

REPORT INFORMATION
  Report Type: 
  Country: None (occurrence: None)
  Receive Date: 20061214
  Receipt Date: 20061211
  Transmission Date: 20070319
  Serious: Yes (Hospitalization)
  Sender: FDA-Public Use
  Company Number: GB-GLAXOSMITHKLINE-B0450504A

PATIENT
  Age: 69 Year
  Sex: Female

DRUGS (11)
  1. ROSIGLITAZONE [Suspect]
     Route: 048
     Dates: start: 20061001, end: 20061121
  2. ASPIRIN [Concomitant]
     Route: 048
  3. ATENOLOL [Concomitant]
     Route: 048
  4. ATORVASTATIN CALCIUM [Concomitant]
     Route: 048
  5. CITALOPRAM HYDROBROMIDE [Concomitant]
  6. CO-DYDRAMOL [Concomitant]
  7. DOXAZOSIN MESYLATE [Concomitant]
  8. FOLIC ACID [Concomitant]
  9. FUROSEMIDE [Concomitant]
  10. GLICLAZIDE [Concomitant]
     Dosage: 80MG TWICE PER DAY
  11. RAMIPRIL [Concomitant]

REACTIONS (5)
  - CARDIAC FAILURE CONGESTIVE [None]
  - DYSPNOEA [None]
  - FLUID OVERLOAD [None]
  - OEDEMA PERIPHERAL [None]
  - PULMONARY OEDEMA [None]
